FAERS Safety Report 16517657 (Version 1)
Quarter: 2019Q3

REPORT INFORMATION
  Report Type: Spontaneous
  Country: ES (occurrence: ES)
  Receive Date: 20190702
  Receipt Date: 20190702
  Transmission Date: 20191004
  Serious: Yes (Life-Threatening, Other)
  Sender: FDA-Public Use
  Company Number: ES-MYLANLABS-2019M1060720

PATIENT
  Age: 75 Year
  Sex: Female
  Weight: 71.3 kg

DRUGS (1)
  1. DOXAZOSINA MYLAN 2 MG COMPRIMIDOS EFG [Suspect]
     Active Substance: DOXAZOSIN MESYLATE
     Indication: HYPERTENSION
     Dosage: 2 MILLIGRAM, QD(1 COMPRIMIDO EN LA CENA)
     Route: 048
     Dates: start: 20181205

REACTIONS (1)
  - Syncope [Recovered/Resolved]

NARRATIVE: CASE EVENT DATE: 20181205
